FAERS Safety Report 6095603-5 (Version None)
Quarter: 2009Q1

REPORT INFORMATION
  Report Type: 
  Country: None (occurrence: None)
  Receive Date: 20090227
  Receipt Date: 20080505
  Transmission Date: 20090719
  Serious: No
  Sender: FDA-Public Use
  Company Number: A0726177A

PATIENT
  Age: 60 Year
  Sex: Female

DRUGS (4)
  1. LAMICTAL [Suspect]
     Indication: BIPOLAR DISORDER
     Dosage: 100MG PER DAY
     Route: 048
     Dates: start: 20071201
  2. GEODON [Concomitant]
  3. NEURONTIN [Concomitant]
  4. AMBIEN [Concomitant]

REACTIONS (4)
  - ECZEMA [None]
  - RASH [None]
  - RASH PRURITIC [None]
  - SKIN EXFOLIATION [None]
